FAERS Safety Report 16558656 (Version 2)
Quarter: 2020Q3

REPORT INFORMATION
  Report Type: Spontaneous
  Country: US (occurrence: US)
  Receive Date: 20190711
  Receipt Date: 20200929
  Transmission Date: 20201102
  Serious: Yes (Hospitalization)
  Sender: FDA-Public Use
  Company Number: US-JNJFOC-20190704356

PATIENT
  Age: 66 Year
  Sex: Female
  Weight: 81.72 kg

DRUGS (1)
  1. XARELTO [Suspect]
     Active Substance: RIVAROXABAN
     Indication: THROMBOSIS
     Route: 048
     Dates: start: 20161026

REACTIONS (2)
  - Haematuria [Unknown]
  - Haemorrhage [Unknown]

NARRATIVE: CASE EVENT DATE: 201702
